FAERS Safety Report 7878805-4 (Version None)
Quarter: 2011Q4

REPORT INFORMATION
  Report Type: 
  Country: None (occurrence: None)
  Receive Date: 20111101
  Receipt Date: 20111024
  Transmission Date: 20120403
  Serious: Yes (Other)
  Sender: FDA-Public Use
  Company Number: US-JNJFOC-20111011053

PATIENT
  Sex: Female
  Weight: 52.16 kg

DRUGS (8)
  1. GALANTAMINE HYDROBROMIDE [Suspect]
     Indication: COGNITIVE DISORDER
     Route: 048
     Dates: start: 20101201
  2. RISEDRONATE SODIUM [Concomitant]
     Indication: BONE DENSITY ABNORMAL
     Route: 048
  3. BROMFENAC SODIUM [Concomitant]
     Indication: CATARACT
     Route: 047
     Dates: start: 20110801
  4. CRESTOR [Suspect]
     Indication: PRODUCT USED FOR UNKNOWN INDICATION
     Route: 065
  5. SERTRALINE HYDROCHLORIDE [Concomitant]
     Indication: ANXIETY
     Route: 048
     Dates: start: 20000101
  6. PREDNISONE [Concomitant]
     Indication: PRODUCT USED FOR UNKNOWN INDICATION
     Route: 048
     Dates: start: 20110901
  7. RISPERDAL [Suspect]
     Indication: HALLUCINATION
     Route: 048
     Dates: start: 20110906
  8. AZOPT [Concomitant]
     Indication: CATARACT
     Route: 047
     Dates: start: 20111001

REACTIONS (1)
  - NEUROLEPTIC MALIGNANT SYNDROME [None]
